FAERS Safety Report 24246228 (Version 1)
Quarter: 2024Q3

REPORT INFORMATION
  Report Type: Spontaneous
  Country: CN (occurrence: CN)
  Receive Date: 20240825
  Receipt Date: 20240825
  Transmission Date: 20241017
  Serious: Yes (Hospitalization, Other)
  Sender: AMGEN
  Company Number: CN-AMGEN-CHNSP2024164730

PATIENT
  Age: 35 Year
  Sex: Female

DRUGS (5)
  1. FILGRASTIM [Suspect]
     Active Substance: FILGRASTIM
     Indication: White blood cell count decreased
     Dosage: UNK
     Route: 065
  2. FILGRASTIM [Suspect]
     Active Substance: FILGRASTIM
     Indication: Off label use
  3. TACROLIMUS [Concomitant]
     Active Substance: TACROLIMUS
     Indication: White blood cell count decreased
     Dosage: 1 MILLIGRAM, BID
  4. CEFOPERAZONE SODIUM\SULBACTAM SODIUM [Concomitant]
     Active Substance: CEFOPERAZONE SODIUM\SULBACTAM SODIUM
     Indication: Anti-infective therapy
     Dosage: UNK
  5. HYDROXYCHLOROQUINE SULFATE [Concomitant]
     Active Substance: HYDROXYCHLOROQUINE SULFATE
     Dosage: 200 MILLIGRAM, QD

REACTIONS (3)
  - Pericarditis [Recovering/Resolving]
  - Interstitial lung disease [Recovering/Resolving]
  - Off label use [Unknown]
